FAERS Safety Report 9878766 (Version 2)
Quarter: 2014Q3

REPORT INFORMATION
  Report Type: Spontaneous
  Country: US (occurrence: US)
  Receive Date: 20140206
  Receipt Date: 20140718
  Transmission Date: 20150326
  Serious: Yes (Hospitalization)
  Sender: FDA-Public Use
  Company Number: US-GLAXOSMITHKLINE-A1059029A

PATIENT
  Age: 50 Year
  Sex: Male

DRUGS (3)
  1. ADVAIR HFA [Suspect]
     Active Substance: FLUTICASONE PROPIONATE\SALMETEROL XINAFOATE
     Indication: PRODUCT USED FOR UNKNOWN INDICATION
     Dosage: 1PUFF TWICE PER DAY
     Route: 055
     Dates: start: 20131120
  2. VENTOLIN [Suspect]
     Active Substance: ALBUTEROL SULFATE
     Indication: INHALATION THERAPY
     Dosage: 2PUFF UNKNOWN
     Route: 055
     Dates: start: 20131126
  3. TYLENOL [Concomitant]
     Active Substance: ACETAMINOPHEN

REACTIONS (6)
  - Influenza [Recovered/Resolved]
  - Rhinorrhoea [Recovered/Resolved]
  - Asthenia [Recovered/Resolved]
  - Bronchitis [Recovered/Resolved]
  - Cough [Recovered/Resolved]
  - Decreased appetite [Recovered/Resolved]

NARRATIVE: CASE EVENT DATE: 201312
